FAERS Safety Report 17645815 (Version 1)
Quarter: 2020Q2

REPORT INFORMATION
  Report Type: Spontaneous
  Country: JP (occurrence: JP)
  Receive Date: 20200408
  Receipt Date: 20200408
  Transmission Date: 20200713
  Serious: Yes (Hospitalization)
  Sender: FDA-Public Use
  Company Number: JP-AMNEAL PHARMACEUTICALS-2020-AMRX-01062

PATIENT
  Age: 42 Year
  Sex: Female

DRUGS (4)
  1. WARFARIN SODIUM. [Suspect]
     Active Substance: WARFARIN SODIUM
     Indication: NEPHROPATHY
  2. WARFARIN SODIUM. [Suspect]
     Active Substance: WARFARIN SODIUM
     Indication: ANTIPHOSPHOLIPID SYNDROME
     Dosage: UNK
     Route: 065
  3. ASPIRIN (E.C.) [Suspect]
     Active Substance: ASPIRIN
     Indication: ANTIPHOSPHOLIPID SYNDROME
     Dosage: UNK
     Route: 065
  4. ASPIRIN (E.C.) [Suspect]
     Active Substance: ASPIRIN
     Indication: NEPHROPATHY

REACTIONS (4)
  - Coma [Recovered/Resolved]
  - Aortic dissection [Recovered/Resolved]
  - Hypertension [Recovered/Resolved]
  - Cerebellar haemorrhage [Recovered/Resolved]
